FAERS Safety Report 4815397-8 (Version None)
Quarter: 2005Q4

REPORT INFORMATION
  Report Type: 
  Country: None (occurrence: None)
  Receive Date: 20051027
  Receipt Date: 20051017
  Transmission Date: 20060501
  Serious: Yes (Other)
  Sender: FDA-Public Use
  Company Number: 2005118801

PATIENT
  Age: 69 Year
  Sex: Male
  Weight: 96.1626 kg

DRUGS (6)
  1. VIAGRA [Suspect]
     Indication: ERECTILE DYSFUNCTION
     Dosage: 100 MG
     Dates: start: 20050701
  2. ALLOPURINOL [Concomitant]
  3. COREG [Concomitant]
  4. LASIX [Concomitant]
  5. NORVASC [Concomitant]
  6. ASPIRIN [Concomitant]

REACTIONS (6)
  - CORONARY ARTERY DISEASE [None]
  - DRUG EFFECT DECREASED [None]
  - HYPERTENSION [None]
  - PERIPHERAL VASCULAR DISORDER [None]
  - PROSTATE CANCER [None]
  - RENAL FAILURE [None]
